FAERS Safety Report 19956445 (Version 1)
Quarter: 2021Q4

REPORT INFORMATION
  Report Type: Spontaneous
  Country: US (occurrence: US)
  Receive Date: 20211014
  Receipt Date: 20211014
  Transmission Date: 20220303
  Serious: No
  Sender: FDA-Public Use
  Company Number: US-TOLMAR, INC.-21US028322

PATIENT
  Age: 16 Year

DRUGS (1)
  1. ELIGARD [Suspect]
     Active Substance: LEUPROLIDE ACETATE
     Indication: Product used for unknown indication
     Dosage: 45 MILLIGRAM
     Dates: start: 20210618

REACTIONS (3)
  - Product preparation error [Unknown]
  - Product physical consistency issue [Unknown]
  - Off label use [Unknown]

NARRATIVE: CASE EVENT DATE: 20210618
